FAERS Safety Report 8079671-7 (Version None)
Quarter: 2012Q1

REPORT INFORMATION
  Report Type: 
  Country: None (occurrence: None)
  Receive Date: 20120128
  Receipt Date: 20110811
  Transmission Date: 20120608
  Serious: No
  Sender: FDA-Public Use
  Company Number: US-ABBOTT-11P-163-0845749-00

PATIENT
  Sex: Female
  Weight: 99.88 kg

DRUGS (7)
  1. MOBIC [Concomitant]
     Indication: RHEUMATOID ARTHRITIS
  2. MULTI-VITAMIN [Concomitant]
     Indication: VITAMIN SUPPLEMENTATION
  3. HUMIRA [Suspect]
     Indication: RHEUMATOID ARTHRITIS
     Dates: start: 20110713, end: 20110713
  4. SINGULAIR [Concomitant]
     Indication: NASAL CONGESTION
  5. ARAVA [Concomitant]
     Indication: RHEUMATOID ARTHRITIS
  6. CIMZIA [Concomitant]
     Indication: RHEUMATOID ARTHRITIS
     Dates: start: 20110811
  7. GLUCOSAMINE [Concomitant]
     Indication: RHEUMATOID ARTHRITIS

REACTIONS (3)
  - SKIN BURNING SENSATION [None]
  - RASH [None]
  - PRURITUS GENERALISED [None]
